FAERS Safety Report 20329342 (Version 1)
Quarter: 2022Q1

REPORT INFORMATION
  Report Type: Report from Study
  Country: US (occurrence: None)
  Receive Date: 20220112
  Receipt Date: 20220112
  Transmission Date: 20220424
  Serious: Yes (Hospitalization)
  Sender: FDA-Public Use
  Company Number: US-Eisai Medical Research-EC-2021-104946

PATIENT
  Age: 67 Year
  Sex: Female

DRUGS (2)
  1. LENVIMA [Suspect]
     Active Substance: LENVATINIB
     Indication: Endometrial cancer
     Route: 048
     Dates: start: 20211203, end: 20211211
  2. KEYTRUDA [Concomitant]
     Active Substance: PEMBROLIZUMAB

REACTIONS (15)
  - Muscular weakness [Unknown]
  - Asthenia [Unknown]
  - Internal haemorrhage [Unknown]
  - Stomatitis [Unknown]
  - Arthralgia [Unknown]
  - Skin exfoliation [Unknown]
  - Rash [Unknown]
  - Dysphagia [Unknown]
  - Dysphonia [Unknown]
  - Swollen tongue [Unknown]
  - Fatigue [Unknown]
  - Vaginal haemorrhage [Unknown]
  - Myalgia [Unknown]
  - Arthralgia [Unknown]
  - Decreased appetite [Unknown]

NARRATIVE: CASE EVENT DATE: 20210101
